FAERS Safety Report 7729502-7 (Version None)
Quarter: 2011Q3

REPORT INFORMATION
  Report Type: 
  Country: None (occurrence: None)
  Receive Date: 20110906
  Receipt Date: 20110829
  Transmission Date: 20111222
  Serious: Yes (Other)
  Sender: FDA-Public Use
  Company Number: BR-JNJFOC-20110900418

PATIENT
  Age: 52 Year
  Sex: Female
  Weight: 84 kg

DRUGS (2)
  1. ACETAMINOPHEN W/ CODEINE [Suspect]
     Indication: BACK PAIN
     Route: 048
     Dates: start: 20110826
  2. SOY ISOFLAVONES [Concomitant]
     Route: 048

REACTIONS (4)
  - SOMNOLENCE [None]
  - TREMOR [None]
  - FEELING HOT [None]
  - DEPRESSION [None]
